FAERS Safety Report 14431307 (Version 4)
Quarter: 2019Q2

REPORT INFORMATION
  Report Type: Spontaneous
  Country: US (occurrence: US)
  Receive Date: 20180124
  Receipt Date: 20190508
  Transmission Date: 20190711
  Serious: No
  Sender: FDA-Public Use
  Company Number: US-PFIZER INC-2018030647

PATIENT
  Age: 34 Year
  Sex: Female

DRUGS (2)
  1. LYRICA [Suspect]
     Active Substance: PREGABALIN
     Dosage: 600 MG, 1X/DAY
  2. LYRICA [Suspect]
     Active Substance: PREGABALIN
     Dosage: 1200 MG, DAILY

REACTIONS (5)
  - Product use issue [Unknown]
  - Prescribed overdose [Unknown]
  - Fatigue [Unknown]
  - Myalgia [Unknown]
  - Off label use [Unknown]
